FAERS Safety Report 7554295-6 (Version None)
Quarter: 2011Q2

REPORT INFORMATION
  Report Type: 
  Country: None (occurrence: None)
  Receive Date: 20110617
  Receipt Date: 20110613
  Transmission Date: 20111010
  Serious: Yes (Other)
  Sender: FDA-Public Use
  Company Number: US-PFIZER INC-2011129922

PATIENT
  Sex: Female

DRUGS (2)
  1. CLINDAMYCIN PHOSPHATE [Suspect]
     Dosage: UNK
  2. PREMARIN [Suspect]
     Dosage: UNK
     Route: 067

REACTIONS (4)
  - CLOSTRIDIAL INFECTION [None]
  - NEPHROLITHIASIS [None]
  - DIARRHOEA [None]
  - CYSTITIS [None]
